FAERS Safety Report 18496490 (Version 1)
Quarter: 2020Q4

REPORT INFORMATION
  Report Type: Spontaneous
  Country: JP (occurrence: JP)
  Receive Date: 20201112
  Receipt Date: 20201112
  Transmission Date: 20210114
  Serious: Yes (Other)
  Sender: FDA-Public Use
  Company Number: JP-ACCORD-207955

PATIENT
  Age: 66 Year
  Sex: Male

DRUGS (3)
  1. PEMBROLIZUMAB. [Suspect]
     Active Substance: PEMBROLIZUMAB
     Indication: METASTASES TO LYMPH NODES
     Dosage: ON DAY 1 EVERY 3 WEEKS
     Route: 042
  2. CARBOPLATIN. [Suspect]
     Active Substance: CARBOPLATIN
     Indication: METASTASES TO LYMPH NODES
     Dosage: ON DAY 1 EVERY 3 WEEKS
     Route: 042
  3. PEMETREXED. [Suspect]
     Active Substance: PEMETREXED
     Indication: METASTASES TO LYMPH NODES
     Dosage: ON DAY 1 EVERY 3 WEEKS
     Route: 042

REACTIONS (2)
  - Pancytopenia [Unknown]
  - Fatigue [Unknown]
